FAERS Safety Report 9276562 (Version 1)
Quarter: 2013Q2

REPORT INFORMATION
  Report Type: Spontaneous
  Country: US (occurrence: US)
  Receive Date: 20130507
  Receipt Date: 20130507
  Transmission Date: 20140414
  Serious: No
  Sender: FDA-Public Use
  Company Number: US-PFIZER INC-2013138669

PATIENT
  Age: 54 Year
  Sex: Female
  Weight: 48.98 kg

DRUGS (2)
  1. ADVIL [Suspect]
     Indication: TOOTHACHE
     Dosage: 200 MG, EVERY 4 TO 6 HOURS AS NEEDED
     Route: 048
     Dates: start: 20130422, end: 20130422
  2. ADVIL [Suspect]
     Indication: SWELLING FACE

REACTIONS (2)
  - Drug ineffective [Unknown]
  - Incorrect dose administered [Unknown]
